FAERS Safety Report 10638376 (Version 7)
Quarter: 2015Q3

REPORT INFORMATION
  Report Type: Report from Study
  Country: US (occurrence: US)
  Receive Date: 20141208
  Receipt Date: 20150818
  Transmission Date: 20151125
  Serious: Yes (Hospitalization, Other)
  Sender: FDA-Public Use
  Company Number: US-SA-2014SA110268

PATIENT
  Age: 66 Year
  Sex: Female

DRUGS (3)
  1. AUBAGIO [Suspect]
     Active Substance: TERIFLUNOMIDE
     Indication: MULTIPLE SCLEROSIS
     Route: 048
     Dates: start: 20140806
  2. AUBAGIO [Suspect]
     Active Substance: TERIFLUNOMIDE
     Indication: MULTIPLE SCLEROSIS
     Route: 048
  3. AUBAGIO [Suspect]
     Active Substance: TERIFLUNOMIDE
     Indication: MULTIPLE SCLEROSIS
     Route: 048
     Dates: start: 20140709

REACTIONS (38)
  - Tremor [Unknown]
  - Feeling cold [Unknown]
  - Condition aggravated [Unknown]
  - Drug dose omission [Unknown]
  - Memory impairment [Unknown]
  - Multiple sclerosis relapse [Unknown]
  - Burning sensation [Unknown]
  - Agitation [Unknown]
  - Dyspnoea [Unknown]
  - Fatigue [Unknown]
  - Temperature intolerance [Unknown]
  - Temporomandibular joint syndrome [Unknown]
  - Dizziness [Unknown]
  - Dysphagia [Unknown]
  - Rheumatoid arthritis [Unknown]
  - Alopecia [Not Recovered/Not Resolved]
  - Back pain [Unknown]
  - Panic attack [Unknown]
  - Paraesthesia [Unknown]
  - Fear [Unknown]
  - Asthenia [Unknown]
  - Musculoskeletal stiffness [Unknown]
  - Hyperventilation [Unknown]
  - Hypoaesthesia [Unknown]
  - Anxiety [Unknown]
  - Frustration [Unknown]
  - Pain [Unknown]
  - Multiple sclerosis [Unknown]
  - Fungal skin infection [Unknown]
  - Insomnia [Unknown]
  - Stress [Unknown]
  - Muscle tightness [Unknown]
  - Band sensation [Unknown]
  - Decreased appetite [Unknown]
  - Abdominal pain upper [Unknown]
  - Oedema peripheral [Unknown]
  - Pain in extremity [Unknown]
  - Therapeutic response decreased [Unknown]

NARRATIVE: CASE EVENT DATE: 201408
